FAERS Safety Report 19459450 (Version 4)
Quarter: 2021Q4

REPORT INFORMATION
  Report Type: Report from Study
  Country: VN (occurrence: VN)
  Receive Date: 20210624
  Receipt Date: 20211014
  Transmission Date: 20220303
  Serious: Yes (Other)
  Sender: FDA-Public Use
  Company Number: NVSC2021VN138549

PATIENT
  Age: 1 Year
  Sex: Male
  Weight: 10.8 kg

DRUGS (1)
  1. ZOLGENSMA [Suspect]
     Active Substance: ONASEMNOGENE ABEPARVOVEC-XIOI
     Indication: Spinal muscular atrophy
     Dosage: 7 DF, ONCE/SINGLE (VIALS OF 8.3 ML FOR ONCE TIME USE)
     Route: 042
     Dates: start: 20210608

REACTIONS (4)
  - Thrombocytopenia [Unknown]
  - Hypertransaminasaemia [Not Recovered/Not Resolved]
  - Pyrexia [Recovered/Resolved]
  - Hepatic enzyme increased [Unknown]

NARRATIVE: CASE EVENT DATE: 20210610
